FAERS Safety Report 9552610 (Version 1)
Quarter: 2013Q3

REPORT INFORMATION
  Report Type: Spontaneous
  Country: US (occurrence: None)
  Receive Date: 20130802
  Receipt Date: 20130802
  Transmission Date: 20140515
  Serious: Yes (Hospitalization)
  Sender: FDA-Public Use
  Company Number: OPER20110246

PATIENT
  Age: 27 Year
  Sex: Male

DRUGS (1)
  1. OPANA ER [Suspect]
     Indication: BACK PAIN
     Dosage: 4 IN 1 D
     Route: 048
     Dates: start: 20110715, end: 20110730

REACTIONS (3)
  - Back pain [None]
  - Drug ineffective [None]
  - Drug withdrawal syndrome [None]
